FAERS Safety Report 9152335 (Version 1)
Quarter: 2013Q1

REPORT INFORMATION
  Report Type: Spontaneous
  Country: US (occurrence: US)
  Receive Date: 20130308
  Receipt Date: 20130308
  Transmission Date: 20140127
  Serious: No
  Sender: FDA-Public Use
  Company Number: US-ASTRAZENECA-2013SE12992

PATIENT
  Age: 64 Year
  Sex: Female
  Weight: 75.8 kg

DRUGS (9)
  1. NEXIUM [Suspect]
     Indication: GASTROOESOPHAGEAL REFLUX DISEASE
     Route: 048
     Dates: start: 2011
  2. NEXIUM [Suspect]
     Indication: EROSIVE OESOPHAGITIS
     Route: 048
     Dates: start: 2011
  3. NEXIUM [Suspect]
     Indication: GASTROOESOPHAGEAL REFLUX DISEASE
     Dosage: EVERY OTHER DAY
     Route: 048
  4. NEXIUM [Suspect]
     Indication: EROSIVE OESOPHAGITIS
     Dosage: EVERY OTHER DAY
     Route: 048
  5. ESTRING [Concomitant]
     Indication: OESTROGEN REPLACEMENT THERAPY
  6. IBUPROFEN [Concomitant]
     Indication: OROPHARYNGEAL PAIN
  7. FLONASE [Concomitant]
     Indication: NASOPHARYNGITIS
  8. ALBUTEROL INHALER [Concomitant]
     Indication: PULMONARY CONGESTION
  9. ALBUTEROL INHALER [Concomitant]
     Indication: COUGH

REACTIONS (7)
  - Cough [Unknown]
  - Dyspepsia [Unknown]
  - Nasopharyngitis [Unknown]
  - Oropharyngeal pain [Unknown]
  - Post viral fatigue syndrome [Unknown]
  - Viral infection [Unknown]
  - Intentional drug misuse [Unknown]
